FAERS Safety Report 4862486-8 (Version None)
Quarter: 2005Q4

REPORT INFORMATION
  Report Type: 
  Country: None (occurrence: None)
  Receive Date: 20051221
  Receipt Date: 20051206
  Transmission Date: 20060501
  Serious: Yes (Hospitalization)
  Sender: FDA-Public Use
  Company Number: 2005CG02020

PATIENT
  Age: 21738 Day
  Sex: Male
  Weight: 60 kg

DRUGS (16)
  1. NEXIUM [Suspect]
     Indication: PROPHYLAXIS AGAINST GASTROINTESTINAL ULCER
     Route: 048
     Dates: start: 20050915, end: 20051014
  2. ONCOVIN [Interacting]
     Indication: HODGKIN'S DISEASE STAGE IV
     Route: 042
     Dates: start: 20050831, end: 20050831
  3. ONCOVIN [Interacting]
     Route: 042
     Dates: start: 20050907, end: 20050907
  4. ONCOVIN [Interacting]
     Route: 042
     Dates: start: 20050928, end: 20050928
  5. ONCOVIN [Interacting]
     Route: 042
     Dates: start: 20051005, end: 20051005
  6. KALETRA [Interacting]
     Route: 048
     Dates: start: 20050915
  7. KENZEN [Concomitant]
  8. EPIVIR [Concomitant]
  9. VIREAD [Concomitant]
  10. SECTRAL [Concomitant]
  11. PLAVIX [Concomitant]
  12. KARDEGIC [Concomitant]
  13. BACTRIM [Concomitant]
  14. CARYOLYSINE [Concomitant]
     Indication: HODGKIN'S DISEASE STAGE IV
     Route: 042
  15. PROCARBAZINE [Concomitant]
     Indication: HODGKIN'S DISEASE STAGE IV
     Route: 042
  16. PREDNISOLONE [Concomitant]
     Indication: HODGKIN'S DISEASE STAGE IV
     Route: 042

REACTIONS (6)
  - AGRANULOCYTOSIS [None]
  - ANAEMIA [None]
  - DRUG INTERACTION [None]
  - HYPONATRAEMIA [None]
  - INAPPROPRIATE ANTIDIURETIC HORMONE SECRETION [None]
  - PYREXIA [None]
